FAERS Safety Report 8807432 (Version 1)
Quarter: 2012Q4

REPORT INFORMATION
  Report Type: 
  Country: US (occurrence: US)
  Receive Date: 20120925
  Receipt Date: 20120925
  Transmission Date: 20130627
  Serious: Yes (Death, Hospitalization, Other)
  Sender: FDA-Public Use
  Company Number: US-BAXTER-2012BAX017331

PATIENT
  Age: 68 Year
  Sex: Male

DRUGS (2)
  1. DIANEAL LOW CALCIUM [Suspect]
     Indication: PERITONEAL DIALYSIS
     Route: 033
     Dates: end: 20120910
  2. DIANEAL LOW CALCIUM (ULTRABAG) [Suspect]
     Indication: PERITONEAL DIALYSIS
     Route: 033
     Dates: end: 20120910

REACTIONS (6)
  - Sepsis [Fatal]
  - Cardiac arrest [Fatal]
  - Gastrointestinal disorder [Unknown]
  - Peritonitis bacterial [Not Recovered/Not Resolved]
  - Device related infection [Unknown]
  - Peritoneal dialysis complication [Not Recovered/Not Resolved]
